FAERS Safety Report 15759529 (Version 3)
Quarter: 2019Q1

REPORT INFORMATION
  Report Type: Report from Study
  Country: US (occurrence: US)
  Receive Date: 20181226
  Receipt Date: 20190111
  Transmission Date: 20190417
  Serious: Yes (Hospitalization)
  Sender: FDA-Public Use
  Company Number: US-ROCHE-2234871

PATIENT
  Age: 62 Year
  Sex: Female
  Weight: 103.1 kg

DRUGS (11)
  1. MYCOPHENOLATE MOFETIL. [Suspect]
     Active Substance: MYCOPHENOLATE MOFETIL
     Indication: SYSTEMIC SCLEROSIS PULMONARY
     Dosage: 4 CAPSULE
     Route: 065
     Dates: start: 20180621, end: 20180817
  2. DULOXETINE. [Concomitant]
     Active Substance: DULOXETINE
  3. SUCRALFATE. [Concomitant]
     Active Substance: SUCRALFATE
  4. SYNTHROID [Concomitant]
     Active Substance: LEVOTHYROXINE SODIUM
  5. TRIAMCINOLONE [Concomitant]
     Active Substance: TRIAMCINOLONE
  6. ESTRADIOL. [Concomitant]
     Active Substance: ESTRADIOL
  7. PIRFENIDONE. [Suspect]
     Active Substance: PIRFENIDONE
     Indication: SYSTEMIC SCLEROSIS PULMONARY
     Dosage: 3 CAPSULE
     Route: 048
     Dates: start: 20180621, end: 20181209
  8. PANTOPRAZOLE [Concomitant]
     Active Substance: PANTOPRAZOLE
  9. BENAZEPRIL [Concomitant]
     Active Substance: BENAZEPRIL HYDROCHLORIDE
  10. URSODIOL. [Concomitant]
     Active Substance: URSODIOL
  11. MYCOPHENOLATE MOFETIL. [Suspect]
     Active Substance: MYCOPHENOLATE MOFETIL
     Dosage: 4 CAPSULE
     Route: 065
     Dates: start: 20180825, end: 20181209

REACTIONS (1)
  - Colitis [Recovering/Resolving]

NARRATIVE: CASE EVENT DATE: 20181209
